FAERS Safety Report 14406675 (Version 9)
Quarter: 2018Q3

REPORT INFORMATION
  Report Type: Spontaneous
  Country: GB (occurrence: GB)
  Receive Date: 20180118
  Receipt Date: 20180920
  Transmission Date: 20181010
  Serious: Yes (Other)
  Sender: FDA-Public Use
  Company Number: GB-009507513-1801GBR002683

PATIENT
  Age: 46 Year
  Sex: Male
  Weight: 81 kg

DRUGS (3)
  1. DACLATASVIR DIHYDROCHLORIDE [Suspect]
     Active Substance: DACLATASVIR DIHYDROCHLORIDE
     Indication: CHRONIC HEPATITIS C
     Dosage: 60 MG, UNKNOWN
     Route: 048
     Dates: start: 20160107, end: 20160303
  2. RIBAVIRIN. [Suspect]
     Active Substance: RIBAVIRIN
     Indication: CHRONIC HEPATITIS C
     Dosage: 1.2 G, UNKNOWN
     Route: 048
     Dates: start: 20160107, end: 20160303
  3. SOVALDI [Suspect]
     Active Substance: SOFOSBUVIR
     Indication: CHRONIC HEPATITIS C
     Dosage: 400 MG, UNKNOWN
     Route: 048
     Dates: start: 20160107, end: 20160303

REACTIONS (5)
  - Genotype drug resistance test positive [Unknown]
  - Drug ineffective [Unknown]
  - Intentional dose omission [Unknown]
  - Incorrect drug administration duration [Unknown]
  - Hepatitis C [Unknown]

NARRATIVE: CASE EVENT DATE: 201603
